FAERS Safety Report 25703196 (Version 2)
Quarter: 2025Q3

REPORT INFORMATION
  Report Type: Spontaneous
  Country: US (occurrence: US)
  Receive Date: 20250820
  Receipt Date: 20250821
  Transmission Date: 20251021
  Serious: No
  Sender: ALEXION PHARMACEUTICALS
  Company Number: US-AstraZeneca-CH-00931637A

PATIENT
  Sex: Female

DRUGS (2)
  1. LYNPARZA [Suspect]
     Active Substance: OLAPARIB
     Indication: Breast cancer metastatic
     Dosage: 400 MILLIGRAM, BID
     Route: 065
     Dates: start: 202501
  2. LYNPARZA [Suspect]
     Active Substance: OLAPARIB
     Indication: Breast cancer metastatic
     Dosage: 350 MILLIGRAM, BID
     Route: 065

REACTIONS (10)
  - Dizziness [Unknown]
  - Ear pruritus [Unknown]
  - Pain [Unknown]
  - Pruritus [Unknown]
  - Scratch [Unknown]
  - Dizziness [Unknown]
  - Diarrhoea [Unknown]
  - Memory impairment [Unknown]
  - Feeling abnormal [Unknown]
  - Off label use [Unknown]
